FAERS Safety Report 13405530 (Version 1)
Quarter: 2017Q2

REPORT INFORMATION
  Report Type: Spontaneous
  Country: US (occurrence: US)
  Receive Date: 20170405
  Receipt Date: 20170405
  Transmission Date: 20170830
  Serious: Yes (Other)
  Sender: FDA-Public Use
  Company Number: US-TEVA-755636USA

PATIENT
  Age: 28 Year
  Sex: Male

DRUGS (2)
  1. LEVOFLOXACIN TABLETS, 250 MG, 500 MG AND 750 MG [Suspect]
     Active Substance: LEVOFLOXACIN
     Indication: BURKHOLDERIA INFECTION
     Route: 065
  2. COLACE [Suspect]
     Active Substance: DOCUSATE SODIUM
     Route: 065

REACTIONS (3)
  - Transmission of an infectious agent via product [Recovering/Resolving]
  - Burkholderia infection [Recovering/Resolving]
  - Pathogen resistance [Unknown]
